FAERS Safety Report 6399690-6 (Version None)
Quarter: 2009Q4

REPORT INFORMATION
  Report Type: 
  Country: None (occurrence: None)
  Receive Date: 20091014
  Receipt Date: 20091005
  Transmission Date: 20100525
  Serious: Yes (Other)
  Sender: FDA-Public Use
  Company Number: GB-ROCHE-661400

PATIENT
  Age: 33 Year
  Sex: Male

DRUGS (1)
  1. ROACCUTANE [Suspect]
     Indication: ACNE
     Route: 065

REACTIONS (12)
  - ANAL PRURITUS [None]
  - BLINDNESS [None]
  - BLOOD BLISTER [None]
  - DEPRESSION [None]
  - EYE DISORDER [None]
  - GASTRIC DISORDER [None]
  - INTESTINAL FUNCTIONAL DISORDER [None]
  - RASH [None]
  - SCAR [None]
  - SKIN DISORDER [None]
  - SUICIDAL IDEATION [None]
  - TONGUE DISCOLOURATION [None]
